FAERS Safety Report 12042397 (Version 1)
Quarter: 2016Q1

REPORT INFORMATION
  Report Type: Spontaneous
  Country: US (occurrence: US)
  Receive Date: 20160208
  Receipt Date: 20160208
  Transmission Date: 20160526
  Serious: No
  Sender: FDA-Public Use
  Company Number: US-009507513-1602USA002237

PATIENT
  Sex: Male

DRUGS (2)
  1. TEMODAR [Suspect]
     Active Substance: TEMOZOLOMIDE
     Dosage: STRENGTH 5 MG, 3 DF, UNK
     Route: 048
  2. TEMODAR [Suspect]
     Active Substance: TEMOZOLOMIDE
     Dosage: STRENGTH 140 MG, 1 DF, UNK

REACTIONS (3)
  - No adverse event [Unknown]
  - Overdose [Unknown]
  - Inappropriate schedule of drug administration [Unknown]
